FAERS Safety Report 9394361 (Version 1)
Quarter: 2013Q3

REPORT INFORMATION
  Report Type: Report from Study
  Country: AU (occurrence: AU)
  Receive Date: 20130711
  Receipt Date: 20130711
  Transmission Date: 20140515
  Serious: Yes (Other)
  Sender: FDA-Public Use
  Company Number: AU-ROCHE-1225267

PATIENT
  Age: 72 Year
  Sex: Female

DRUGS (1)
  1. ACTEMRA [Suspect]
     Indication: RHEUMATOID ARTHRITIS
     Route: 042
     Dates: start: 20091203, end: 20101029

REACTIONS (3)
  - Platelet count decreased [Unknown]
  - Malaise [Unknown]
  - Malaise [Unknown]
